FAERS Safety Report 21765800 (Version 4)
Quarter: 2023Q1

REPORT INFORMATION
  Report Type: Spontaneous
  Country: GB (occurrence: GB)
  Receive Date: 20221222
  Receipt Date: 20230112
  Transmission Date: 20230418
  Serious: Yes (Life-Threatening, Hospitalization, Congenital Anomaly, Other)
  Sender: FDA-Public Use
  Company Number: GB-AMGEN-GBRSP2022222231

PATIENT

DRUGS (7)
  1. OTEZLA [Suspect]
     Active Substance: APREMILAST
     Indication: Maternal exposure during pregnancy
     Dosage: UNK
     Route: 064
  2. FOLIC ACID [Concomitant]
     Active Substance: FOLIC ACID
     Indication: Maternal exposure during pregnancy
     Dosage: UNK
     Route: 064
  3. FOLIC ACID [Concomitant]
     Active Substance: FOLIC ACID
  4. INSULIN NOS [Concomitant]
     Active Substance: INSULIN NOS
  5. METHYLDOPA [Concomitant]
     Active Substance: METHYLDOPA
  6. SERTRALINE [Concomitant]
     Active Substance: SERTRALINE HYDROCHLORIDE
  7. RAMIPRIL [Concomitant]
     Active Substance: RAMIPRIL

REACTIONS (5)
  - Scimitar syndrome [Unknown]
  - Ventricular septal defect [Unknown]
  - Anomalous pulmonary venous connection [Unknown]
  - Congenital gastric anomaly [Unknown]
  - Foetal exposure during pregnancy [Unknown]

NARRATIVE: CASE EVENT DATE: 20210101
